FAERS Safety Report 15135010 (Version 1)
Quarter: 2018Q3

REPORT INFORMATION
  Report Type: Spontaneous
  Country: US (occurrence: US)
  Receive Date: 20180712
  Receipt Date: 20180712
  Transmission Date: 20181010
  Serious: No
  Sender: FDA-Public Use
  Company Number: US-PFIZER INC-2018281829

PATIENT
  Age: 59 Year
  Sex: Female
  Weight: 104.3 kg

DRUGS (4)
  1. BUMETANIDE. [Concomitant]
     Active Substance: BUMETANIDE
  2. POTASSIUM [Concomitant]
     Active Substance: POTASSIUM
  3. LYRICA [Suspect]
     Active Substance: PREGABALIN
     Indication: POST HERPETIC NEURALGIA
     Dosage: 75 MG, 2X/DAY
  4. AMLODIPINE [Concomitant]
     Active Substance: AMLODIPINE BESYLATE
     Indication: HYPERTENSION

REACTIONS (2)
  - Condition aggravated [Unknown]
  - Pain [Unknown]
